FAERS Safety Report 7458763-7 (Version None)
Quarter: 2011Q2

REPORT INFORMATION
  Report Type: 
  Country: None (occurrence: None)
  Receive Date: 20110504
  Receipt Date: 20110428
  Transmission Date: 20111010
  Serious: Yes (Death)
  Sender: FDA-Public Use
  Company Number: TR-PFIZER INC-2011087617

PATIENT
  Age: 45 Year
  Sex: Female

DRUGS (2)
  1. SULPERAZON [Suspect]
     Dosage: 2 G, 3X/DAY
     Route: 042
     Dates: start: 20090730, end: 20090814
  2. IMIPENEM [Suspect]
     Dosage: 2 G, 3X/DAY
     Route: 042
     Dates: start: 20090810, end: 20090814

REACTIONS (1)
  - GENERAL PHYSICAL HEALTH DETERIORATION [None]
